FAERS Safety Report 8001576-8 (Version None)
Quarter: 2011Q4

REPORT INFORMATION
  Report Type: 
  Country: None (occurrence: None)
  Receive Date: 20111222
  Receipt Date: 20111216
  Transmission Date: 20120403
  Serious: No
  Sender: FDA-Public Use
  Company Number: DE-ROCHE-1015431

PATIENT
  Age: 63 Year
  Sex: Male

DRUGS (6)
  1. AMARYL [Concomitant]
     Indication: DIABETES MELLITUS
  2. CANDESARTAN CILEXETIL [Concomitant]
     Indication: HYPERTENSION
  3. ATORVASTATIN CALCIUM [Concomitant]
     Indication: HYPERLIPIDAEMIA
  4. BONIVA [Suspect]
     Indication: OSTEOPOROSIS
     Route: 042
     Dates: start: 20110601
  5. PIOGLITAZONE HYDROCHLORIDE/METFORMIN HYDROCHLORIDE [Concomitant]
     Indication: DIABETES MELLITUS
  6. NEBIVOLOL HCL [Concomitant]
     Indication: HYPERTENSION

REACTIONS (1)
  - ANGIOEDEMA [None]
